FAERS Safety Report 9153945 (Version 1)
Quarter: 2013Q1

REPORT INFORMATION
  Report Type: Report from Study
  Country: FR (occurrence: FR)
  Receive Date: 20130311
  Receipt Date: 20130311
  Transmission Date: 20140127
  Serious: Yes (Other)
  Sender: FDA-Public Use
  Company Number: FR-GENZYME-CLOF-1002545

PATIENT
  Age: 54 Year
  Sex: Male

DRUGS (9)
  1. EVOLTRA [Suspect]
     Indication: ACUTE MYELOID LEUKAEMIA
     Dosage: 55 MG, UNK
     Route: 065
     Dates: start: 20101027, end: 20101031
  2. EVOLTRA [Suspect]
     Indication: BONE MARROW CONDITIONING REGIMEN
     Dosage: UNK
     Route: 042
     Dates: start: 20101109, end: 20101109
  3. THYMOGLOBULINE [Suspect]
     Indication: BONE MARROW CONDITIONING REGIMEN
     Dosage: UNK
     Route: 065
  4. THYMOGLOBULINE [Suspect]
  5. ARACYTINE [Suspect]
     Indication: ACUTE MYELOID LEUKAEMIA
     Dosage: UNK
     Route: 065
  6. ARACYTINE [Suspect]
     Indication: BONE MARROW CONDITIONING REGIMEN
  7. ENDOXAN [Suspect]
     Indication: BONE MARROW CONDITIONING REGIMEN
     Dosage: UNK
     Route: 065
  8. BUSILVEX [Suspect]
     Indication: BONE MARROW CONDITIONING REGIMEN
     Dosage: UNK
     Route: 065
  9. CORTICOSTEROID NOS [Suspect]
     Indication: PRODUCT USED FOR UNKNOWN INDICATION
     Dosage: UNK
     Route: 065

REACTIONS (7)
  - Osteoporosis [Unknown]
  - Acute graft versus host disease in intestine [Not Recovered/Not Resolved]
  - Acute graft versus host disease in liver [Not Recovered/Not Resolved]
  - Cytomegalovirus colitis [Not Recovered/Not Resolved]
  - Renal failure [Recovered/Resolved]
  - Acute myeloid leukaemia [Not Recovered/Not Resolved]
  - Clavicle fracture [Not Recovered/Not Resolved]
